FAERS Safety Report 9782397 (Version 3)
Quarter: 2014Q1

REPORT INFORMATION
  Report Type: Spontaneous
  Country: FR (occurrence: FR)
  Receive Date: 20131226
  Receipt Date: 20140303
  Transmission Date: 20141002
  Serious: Yes (Other)
  Sender: FDA-Public Use
  Company Number: FR-TEVA-451506ISR

PATIENT
  Age: 49 Year
  Sex: Female

DRUGS (2)
  1. COPAXONE [Suspect]
     Indication: MULTIPLE SCLEROSIS
     Dates: start: 20131015, end: 20131212
  2. DOLIPRANE [Concomitant]
     Indication: PAIN

REACTIONS (6)
  - Uveitis [Unknown]
  - Psoriasis [Unknown]
  - Pruritus [Unknown]
  - Swelling [Unknown]
  - Pruritus [Unknown]
  - Rash generalised [Unknown]
